FAERS Safety Report 21052035 (Version 1)
Quarter: 2022Q3

REPORT INFORMATION
  Report Type: Other
  Country: US (occurrence: None)
  Receive Date: 20220707
  Receipt Date: 20220707
  Transmission Date: 20221027
  Serious: Yes (Other)
  Sender: FDA-Public Use
  Company Number: US-ROCHE-3127013

PATIENT
  Age: 71 Year
  Sex: Male

DRUGS (8)
  1. ALECTINIB [Suspect]
     Active Substance: ALECTINIB
     Indication: Non-small cell lung cancer metastatic
     Route: 048
     Dates: start: 202009, end: 202011
  2. BEVACIZUMAB [Suspect]
     Active Substance: BEVACIZUMAB
     Indication: Non-small cell lung cancer metastatic
     Route: 042
     Dates: start: 202011, end: 202101
  3. ATEZOLIZUMAB [Suspect]
     Active Substance: ATEZOLIZUMAB
     Indication: Non-small cell lung cancer metastatic
     Route: 042
     Dates: start: 202011, end: 202101
  4. CARBOPLATIN [Suspect]
     Active Substance: CARBOPLATIN
     Indication: Non-small cell lung cancer metastatic
     Route: 042
     Dates: start: 202011, end: 202101
  5. PACLITAXEL [Suspect]
     Active Substance: PACLITAXEL
     Indication: Non-small cell lung cancer metastatic
     Route: 042
     Dates: start: 202011, end: 202101
  6. BOSUTINIB [Concomitant]
     Active Substance: BOSUTINIB
     Dates: start: 202101, end: 202107
  7. PEMETREXED [Concomitant]
     Active Substance: PEMETREXED
     Dates: start: 202101, end: 202107
  8. SOTORASIB [Concomitant]
     Active Substance: SOTORASIB
     Dates: start: 202107, end: 202111

REACTIONS (3)
  - Disease progression [Not Recovered/Not Resolved]
  - Drug ineffective [Unknown]
  - Metastases to bone [Unknown]
